FAERS Safety Report 5311447-3 (Version None)
Quarter: 2007Q2

REPORT INFORMATION
  Report Type: 
  Country: None (occurrence: None)
  Receive Date: 20070426
  Receipt Date: 20070426
  Transmission Date: 20071010
  Serious: No
  Sender: FDA-Public Use
  Company Number: None

PATIENT
  Age: 58 Year
  Sex: Female

DRUGS (4)
  1. LIDOCAINE [Suspect]
     Dosage: 1750-2000 MG/HR SC
     Route: 058
     Dates: start: 20060722, end: 20060802
  2. HYLENEX [Suspect]
     Indication: BACK PAIN
     Dosage: 150 UNITS SC DAILY
     Route: 058
     Dates: start: 20060722, end: 20060802
  3. HYDROMORPHONE HCL [Concomitant]
  4. LORAZEPAM [Concomitant]

REACTIONS (6)
  - AGITATION [None]
  - CONFUSIONAL STATE [None]
  - CONVULSION [None]
  - DRUG LEVEL INCREASED [None]
  - INADEQUATE ANALGESIA [None]
  - POLYMEDICATION [None]
